FAERS Safety Report 9697496 (Version 2)
Quarter: 2016Q1

REPORT INFORMATION
  Report Type: Report from Study
  Country: US (occurrence: US)
  Receive Date: 20131120
  Receipt Date: 20160217
  Transmission Date: 20160526
  Serious: Yes (Other)
  Sender: FDA-Public Use
  Company Number: US-ROCHE-1306284

PATIENT
  Sex: Male

DRUGS (1)
  1. XELODA [Suspect]
     Active Substance: CAPECITABINE
     Indication: COLON CANCER
     Dosage: 2 TABS 2 TIMES A DAY FOR 14 DAYS, THEN OFF FOR 7 DAYS
     Route: 048
     Dates: start: 20130424

REACTIONS (2)
  - Colon cancer metastatic [Unknown]
  - Blindness [Unknown]
